FAERS Safety Report 11096844 (Version 1)
Quarter: 2015Q2

REPORT INFORMATION
  Report Type: Spontaneous
  Country: US (occurrence: US)
  Receive Date: 20150507
  Receipt Date: 20150507
  Transmission Date: 20150821
  Serious: Yes (Other)
  Sender: FDA-Public Use
  Company Number: US-TEVA-559649USA

PATIENT
  Age: 58 Year
  Sex: Female
  Weight: 79.45 kg

DRUGS (3)
  1. COPAXONE [Suspect]
     Active Substance: GLATIRAMER ACETATE
     Indication: MULTIPLE SCLEROSIS
     Route: 065
     Dates: start: 201403
  2. COPAXONE [Suspect]
     Active Substance: GLATIRAMER ACETATE
     Route: 065
     Dates: end: 201403
  3. BACLOFEN. [Concomitant]
     Active Substance: BACLOFEN

REACTIONS (7)
  - Drug ineffective [Not Recovered/Not Resolved]
  - Muscle spasticity [Not Recovered/Not Resolved]
  - Fatigue [Not Recovered/Not Resolved]
  - Asthenia [Not Recovered/Not Resolved]
  - Multiple sclerosis [Not Recovered/Not Resolved]
  - Muscle spasms [Not Recovered/Not Resolved]
  - Therapy change [Not Recovered/Not Resolved]

NARRATIVE: CASE EVENT DATE: 201404
